FAERS Safety Report 8240095-0 (Version None)
Quarter: 2012Q1

REPORT INFORMATION
  Report Type: 
  Country: None (occurrence: None)
  Receive Date: 20120328
  Receipt Date: 20120321
  Transmission Date: 20120608
  Serious: No
  Sender: FDA-Public Use
  Company Number: US-BAYER-2012-029486

PATIENT

DRUGS (4)
  1. ACETAMINOPHEN [Concomitant]
  2. IBUPROFEN [Concomitant]
  3. HYDROCODONE [Concomitant]
  4. ALEVE (CAPLET) [Suspect]
     Indication: HEADACHE
     Route: 048

REACTIONS (1)
  - HEADACHE [None]
